FAERS Safety Report 4690995-3 (Version None)
Quarter: 2005Q2

REPORT INFORMATION
  Report Type: 
  Country: None (occurrence: None)
  Receive Date: 20050610
  Receipt Date: 20050527
  Transmission Date: 20051028
  Serious: Yes (Other)
  Sender: FDA-Public Use
  Company Number: 2005062426

PATIENT
  Age: 68 Year
  Sex: Female

DRUGS (1)
  1. XALATAN [Suspect]
     Indication: OCULAR HYPERTENSION
     Dosage: (1 IN 1D ) OPTHALAMIC
     Route: 047
     Dates: start: 20000701, end: 20001206

REACTIONS (5)
  - DRUG HYPERSENSITIVITY [None]
  - DRUG INTOLERANCE [None]
  - INTRAOCULAR PRESSURE INCREASED [None]
  - OCULAR HYPERAEMIA [None]
  - VERTIGO [None]
